FAERS Safety Report 15695194 (Version 1)
Quarter: 2018Q4

REPORT INFORMATION
  Report Type: Spontaneous
  Country: US (occurrence: US)
  Receive Date: 20181206
  Receipt Date: 20181206
  Transmission Date: 20190205
  Serious: No
  Sender: FDA-Public Use
  Company Number: US-ENDO PHARMACEUTICALS INC-2018-039621

PATIENT
  Age: 71 Year
  Sex: Male

DRUGS (1)
  1. XIAFLEX [Suspect]
     Active Substance: COLLAGENASE CLOSTRIDIUM HISTOLYTICUM
     Indication: PEYRONIE^S DISEASE
     Dosage: UNK MG, 6 INJECTIONS TOTAL
     Route: 026
     Dates: start: 2016

REACTIONS (6)
  - Peyronie^s disease [Unknown]
  - Drug ineffective [Unknown]
  - Penile contusion [Unknown]
  - Injection site pain [Unknown]
  - Condition aggravated [Unknown]
  - Penile swelling [Unknown]
